FAERS Safety Report 4837623-1 (Version None)
Quarter: 2005Q4

REPORT INFORMATION
  Report Type: 
  Country: None (occurrence: None)
  Receive Date: 20051122
  Receipt Date: 20051108
  Transmission Date: 20060501
  Serious: Yes (Hospitalization)
  Sender: FDA-Public Use
  Company Number: JP_051007839

PATIENT
  Age: 56 Year
  Sex: Male

DRUGS (6)
  1. ZYPREXA [Suspect]
     Indication: SCHIZOPHRENIA
     Dosage: 20 MG DAY
     Dates: start: 20040705, end: 20040713
  2. CLONAZEPAM [Concomitant]
  3. VALPROATE SODIUM [Concomitant]
  4. LITHIUM CARBONATE [Concomitant]
  5. DORAL [Concomitant]
  6. SILECE (FLUNITRAZEPAM) [Concomitant]

REACTIONS (1)
  - DYSPHAGIA [None]
